FAERS Safety Report 22109996 (Version 1)
Quarter: 2023Q1

REPORT INFORMATION
  Report Type: Spontaneous
  Country: US (occurrence: US)
  Receive Date: 20230317
  Receipt Date: 20230317
  Transmission Date: 20230418
  Serious: No
  Sender: FDA-Public Use
  Company Number: US-BAYER-2023A030862

PATIENT
  Age: 81 Year
  Sex: Female

DRUGS (2)
  1. MIRALAX [Suspect]
     Active Substance: POLYETHYLENE GLYCOL 3350
  2. ZEJULA [Concomitant]
     Active Substance: NIRAPARIB

REACTIONS (3)
  - Renal function test abnormal [None]
  - Urinary incontinence [Unknown]
  - Therapeutic product effect incomplete [None]
